FAERS Safety Report 9033476 (Version 2)
Quarter: 2013Q4

REPORT INFORMATION
  Report Type: Spontaneous
  Country: GB (occurrence: GB)
  Receive Date: 20130128
  Receipt Date: 20131011
  Transmission Date: 20140711
  Serious: Yes (Other)
  Sender: FDA-Public Use
  Company Number: GB-WATSON-2013-01032

PATIENT
  Age: 74 Year
  Sex: Female
  Weight: 83 kg

DRUGS (5)
  1. METHOTREXATE (UNKNOWN) [Suspect]
     Indication: RHEUMATOID ARTHRITIS
     Dosage: 15 MG, UNKNOWN
     Route: 048
  2. TRIMETHOPRIM (UNKNOWN) [Interacting]
     Indication: KIDNEY INFECTION
     Dosage: 200 MG, BID
     Route: 048
     Dates: start: 20120221, end: 20120228
  3. FOLIC ACID (UNKNOWN) [Suspect]
     Indication: RHEUMATOID ARTHRITIS
     Dosage: 2 DF, 1/WEEK
     Route: 048
     Dates: start: 201006, end: 201202
  4. CIMZIA [Concomitant]
     Indication: PRODUCT USED FOR UNKNOWN INDICATION
     Dosage: UNK
     Route: 065
  5. ROACTEMRA [Concomitant]
     Indication: PRODUCT USED FOR UNKNOWN INDICATION
     Dosage: 2 DF, UNKNOWN, RECEIVED 2 INFUSIONS

REACTIONS (1)
  - Drug interaction [Recovered/Resolved]
